FAERS Safety Report 17204376 (Version 1)
Quarter: 2019Q4

REPORT INFORMATION
  Report Type: Report from Study
  Country: US (occurrence: US)
  Receive Date: 20191226
  Receipt Date: 20191226
  Transmission Date: 20200122
  Serious: Yes (Hospitalization)
  Sender: FDA-Public Use
  Company Number: US-ACTELION-A-US2019-194295

PATIENT
  Sex: Female

DRUGS (10)
  1. CLONAZEPAM. [Concomitant]
     Active Substance: CLONAZEPAM
  2. COREG [Concomitant]
     Active Substance: CARVEDILOL
  3. TRAZODONE [Concomitant]
     Active Substance: TRAZODONE HYDROCHLORIDE
  4. AVAPRO [Concomitant]
     Active Substance: IRBESARTAN
  5. OPSUMIT [Suspect]
     Active Substance: MACITENTAN
     Indication: PLASMA CELL MYELOMA
     Dosage: 10 MG
     Route: 048
  6. OPSUMIT [Suspect]
     Active Substance: MACITENTAN
     Dosage: 10 MG, QD
     Route: 048
     Dates: start: 20190821
  7. PAXIL [Concomitant]
     Active Substance: PAROXETINE HYDROCHLORIDE
  8. LIPITOR [Concomitant]
     Active Substance: ATORVASTATIN CALCIUM
  9. TEMAZEPAM. [Concomitant]
     Active Substance: TEMAZEPAM
  10. SINGULAIR [Concomitant]
     Active Substance: MONTELUKAST SODIUM

REACTIONS (2)
  - Dyspnoea [Unknown]
  - Pneumonia [Recovered/Resolved]
